FAERS Safety Report 10189507 (Version 6)
Quarter: 2014Q3

REPORT INFORMATION
  Report Type: Report from Study
  Country: DE (occurrence: DE)
  Receive Date: 20140522
  Receipt Date: 20140922
  Transmission Date: 20150326
  Serious: Yes (Hospitalization)
  Sender: FDA-Public Use
  Company Number: PHHO2014DE006633

PATIENT

DRUGS (11)
  1. LIDOSPORIN [Concomitant]
     Active Substance: GRAMICIDIN\LIDOCAINE HYDROCHLORIDE\POLYMYXIN B SULFATE
     Indication: PUSTULAR PSORIASIS
     Dosage: 125 MG, / 2XDAY
     Route: 048
     Dates: start: 20140321, end: 20140422
  2. BLINDED AIN457 [Suspect]
     Active Substance: SECUKINUMAB
     Indication: PUSTULAR PSORIASIS
     Dosage: CODE NOT BROKEN
     Route: 058
     Dates: start: 20140203, end: 20140303
  3. TANTUM VERDE [Concomitant]
     Active Substance: BENZYDAMINE HYDROCHLORIDE
     Dosage: 4 TIMES DAILY
     Dates: start: 20140320, end: 20140327
  4. CICLOSPORIN [Suspect]
     Active Substance: CYCLOSPORINE
     Dosage: 125 MG, BID
     Dates: start: 20140519
  5. CETRIZIN /BRA/ [Concomitant]
     Dosage: 10 MG, PRN
     Dates: start: 20140203, end: 20140501
  6. AMOXICILLIN. [Concomitant]
     Active Substance: AMOXICILLIN
     Indication: TONSILLITIS
     Dosage: 1 G, TID
     Route: 048
     Dates: start: 20140320, end: 20140327
  7. IBUPROFEN. [Concomitant]
     Active Substance: IBUPROFEN
     Dosage: 60 MG, PRN
  8. HYDROXYZINE [Concomitant]
     Active Substance: HYDROXYZINE\HYDROXYZINE HYDROCHLORIDE
     Dosage: 25 MG, PRN
     Dates: start: 20140201, end: 20140501
  9. PLACEBO [Suspect]
     Active Substance: UNSPECIFIED INGREDIENT
     Indication: PUSTULAR PSORIASIS
     Dosage: CODE NOT BROKEN
     Route: 058
     Dates: start: 20140203, end: 20140303
  10. CICLOSPORIN [Suspect]
     Active Substance: CYCLOSPORINE
     Dosage: 125 MG, BID
     Dates: start: 20140321, end: 20140422
  11. BLINDED NO TREATMENT RECEIVED [Suspect]
     Active Substance: UNSPECIFIED INGREDIENT
     Indication: PUSTULAR PSORIASIS
     Dosage: CODE NOT BROKEN
     Route: 058
     Dates: start: 20140203, end: 20140303

REACTIONS (2)
  - Aphthous stomatitis [Recovered/Resolved]
  - Rash [Unknown]

NARRATIVE: CASE EVENT DATE: 20140417
